FAERS Safety Report 7091885-1 (Version None)
Quarter: 2010Q4

REPORT INFORMATION
  Report Type: 
  Country: None (occurrence: None)
  Receive Date: 20101101
  Receipt Date: 20101018
  Transmission Date: 20110411
  Serious: Yes (Hospitalization)
  Sender: FDA-Public Use
  Company Number: 2010AL000094

PATIENT
  Age: 74 Year
  Sex: Male
  Weight: 68 kg

DRUGS (3)
  1. PRALATREXATE (PRALATREXATE) [Suspect]
     Indication: BLADDER CANCER
     Dosage: 329 MG;QOW;IV
     Route: 042
     Dates: start: 20100506
  2. CON MEDS [Concomitant]
  3. PREV MEDS [Concomitant]

REACTIONS (11)
  - ABDOMINAL PAIN [None]
  - ASCITES [None]
  - CELLULITIS [None]
  - HAEMOGLOBIN DECREASED [None]
  - METASTASES TO ABDOMINAL CAVITY [None]
  - METASTASES TO LUNG [None]
  - MOUTH ULCERATION [None]
  - RASH [None]
  - SCRATCH [None]
  - STOMATITIS [None]
  - VOMITING [None]
